FAERS Safety Report 4781103-9 (Version None)
Quarter: 2005Q3

REPORT INFORMATION
  Report Type: 
  Country: None (occurrence: None)
  Receive Date: 20050926
  Receipt Date: 20050912
  Transmission Date: 20060218
  Serious: Yes (Death)
  Sender: FDA-Public Use
  Company Number: 2001073066FR

PATIENT
  Age: 50 Year
  Sex: Male

DRUGS (7)
  1. CELEBREX [Suspect]
     Indication: RHEUMATOID ARTHRITIS
     Dosage: 400 MG (200 MG, 2 IN 1 D), ORAL
     Route: 048
     Dates: start: 20010201, end: 20010622
  2. VIOXX [Suspect]
     Indication: RHEUMATOID ARTHRITIS
     Dosage: (1 IN 1 D), ORAL
     Route: 048
     Dates: start: 20010718
  3. NEXEN (NIMESULIDE) [Suspect]
     Indication: RHEUMATOID ARTHRITIS
     Dosage: (2 IN 1 D), ORAL
     Route: 048
     Dates: start: 20010628, end: 20010718
  4. SULFASALAZINE [Concomitant]
  5. XATRAL (ALFUZOSIN) [Concomitant]
  6. EUPANTOL (PANTOPRAZOLE) [Concomitant]
  7. ACETAMINOPHEN [Concomitant]

REACTIONS (5)
  - CARDIAC ARREST [None]
  - CONDUCTION DISORDER [None]
  - DRUG INEFFECTIVE [None]
  - MYOCARDIAL INFARCTION [None]
  - SUDDEN DEATH [None]
